FAERS Safety Report 15656731 (Version 1)
Quarter: 2018Q4

REPORT INFORMATION
  Report Type: Report from Study
  Country: FR (occurrence: FR)
  Receive Date: 20181126
  Receipt Date: 20181126
  Transmission Date: 20190205
  Serious: Yes (Other)
  Sender: FDA-Public Use
  Company Number: FR-SA-2017SA015254

PATIENT
  Age: 65 Year
  Sex: Male

DRUGS (12)
  1. IRINOTECAN [Suspect]
     Active Substance: IRINOTECAN
     Dosage: 340 MG, QCY
     Route: 041
     Dates: start: 20160622, end: 20160622
  2. FENOFIBRATE. [Concomitant]
     Active Substance: FENOFIBRATE
     Dosage: UNK
     Dates: start: 201003
  3. FLUOROURACIL. [Suspect]
     Active Substance: FLUOROURACIL
     Dosage: 4550 MG, QCY
     Route: 041
     Dates: start: 20160209, end: 20160209
  4. APREPITANT. [Concomitant]
     Active Substance: APREPITANT
     Dosage: UNK
     Dates: start: 20160209
  5. FLUOROURACIL. [Suspect]
     Active Substance: FLUOROURACIL
     Indication: COLORECTAL CANCER METASTATIC
     Dosage: 750 MG, QCY
     Route: 040
     Dates: start: 20160209, end: 20160209
  6. FLUOROURACIL. [Suspect]
     Active Substance: FLUOROURACIL
     Dosage: 750 MG, QCY
     Route: 040
     Dates: start: 20160622, end: 20160622
  7. FOLINIC ACID [Suspect]
     Active Substance: LEUCOVORIN
     Indication: COLORECTAL CANCER METASTATIC
     Dosage: 380 MG, QCY
     Route: 041
     Dates: start: 20160209, end: 20160209
  8. DIFFU K [Concomitant]
     Active Substance: POTASSIUM CHLORIDE
     Dosage: UNK UNK,UNK
     Route: 065
     Dates: start: 201607, end: 201608
  9. AFLIBERCEPT [Suspect]
     Active Substance: AFLIBERCEPT
     Indication: COLORECTAL CANCER METASTATIC
     Dosage: 350 MG,QCY
     Route: 041
     Dates: start: 20160209, end: 20160209
  10. IRINOTECAN [Suspect]
     Active Substance: IRINOTECAN
     Indication: COLORECTAL CANCER METASTATIC
     Dosage: 340 MG, QCY
     Route: 041
     Dates: start: 20160209, end: 20160209
  11. FOLINIC ACID [Suspect]
     Active Substance: LEUCOVORIN
     Dosage: 380 MG, QCY
     Route: 041
     Dates: start: 20160622, end: 20160622
  12. FLUOROURACIL. [Suspect]
     Active Substance: FLUOROURACIL
     Dosage: 4550 MG, QCY
     Route: 041
     Dates: start: 20160622, end: 20160622

REACTIONS (3)
  - Pyrexia [Recovered/Resolved]
  - Asthenia [Recovered/Resolved]
  - Hypokalaemia [Recovered/Resolved]

NARRATIVE: CASE EVENT DATE: 20160701
